FAERS Safety Report 8731604 (Version 2)
Quarter: 2013Q1

REPORT INFORMATION
  Report Type: Spontaneous
  Country: MY (occurrence: MY)
  Receive Date: 20120820
  Receipt Date: 20130206
  Transmission Date: 20140127
  Serious: Yes (Hospitalization)
  Sender: FDA-Public Use
  Company Number: MY-B.I. PHARMACEUTICALS,INC./RIDGEFIELD-2012-CS-01181MD

PATIENT
  Age: 40 Year
  Sex: Female

DRUGS (5)
  1. PRADAXA [Suspect]
     Indication: ATRIAL FIBRILLATION
     Dosage: 300 MG
     Route: 048
     Dates: start: 20120627
  2. DIGOXIN [Concomitant]
  3. VERAPAMIL [Concomitant]
  4. AKURIT [Concomitant]
     Indication: TUBERCULOSIS
  5. HEPARIN [Concomitant]
     Route: 042
     Dates: start: 201207

REACTIONS (1)
  - Transient ischaemic attack [Recovered/Resolved]
